FAERS Safety Report 7313226-4 (Version None)
Quarter: 2011Q1

REPORT INFORMATION
  Report Type: 
  Country: None (occurrence: None)
  Receive Date: 20110225
  Receipt Date: 20110216
  Transmission Date: 20110831
  Serious: Yes (Other)
  Sender: FDA-Public Use
  Company Number: CA-JNJFOC-20110206050

PATIENT
  Age: 24 Year
  Sex: Male

DRUGS (2)
  1. RISPERDAL CONSTA [Suspect]
     Indication: PRODUCT USED FOR UNKNOWN INDICATION
     Route: 030
  2. SYNTHROID [Interacting]
     Indication: HYPOTHYROIDISM
     Dosage: 100 DIE
     Route: 065

REACTIONS (2)
  - HYPOTHYROIDISM [None]
  - DRUG INTERACTION [None]
